FAERS Safety Report 10546086 (Version 2)
Quarter: 2014Q4

REPORT INFORMATION
  Report Type: Report from Study
  Country: BF (occurrence: BF)
  Receive Date: 20141027
  Receipt Date: 20141107
  Transmission Date: 20150529
  Serious: Yes (Death)
  Sender: FDA-Public Use
  Company Number: PHHO2014BF014062

PATIENT

DRUGS (3)
  1. FERROUS SULFATE [Concomitant]
     Active Substance: FERROUS SULFATE\FERROUS SULFATE, DRIED
     Dosage: MATERNAL DOSE: 200 MG
     Route: 064
  2. CGP 56697 [Suspect]
     Active Substance: ARTEMETHER\LUMEFANTRINE
     Indication: MALARIA
     Dosage: MATERNAL DOSE:160/960 MG
     Route: 064
  3. PYRIMETHAMINE W/SULFADOXINE [Concomitant]
     Indication: MALARIA
     Dosage: MATERNAL DOSE:1500/75 MG
     Route: 064

REACTIONS (2)
  - Premature baby [Fatal]
  - Foetal exposure during pregnancy [Unknown]

NARRATIVE: CASE EVENT DATE: 20141004
